FAERS Safety Report 9981089 (Version 1)
Quarter: 2014Q1

REPORT INFORMATION
  Report Type: Spontaneous
  Country: US (occurrence: None)
  Receive Date: 20140306
  Receipt Date: 20140306
  Transmission Date: 20141002
  Serious: Yes (Life-Threatening)
  Sender: FDA-Public Use
  Company Number: None

PATIENT
  Age: 68 Year
  Sex: Female
  Weight: 77.11 kg

DRUGS (3)
  1. BENZONATATE [Suspect]
     Indication: COUGH
     Dosage: BY MOUTH, 1 CAPSULE
     Dates: start: 20140214, end: 20140215
  2. VITAMINS [Concomitant]
  3. OSCAL [Concomitant]

REACTIONS (6)
  - Retching [None]
  - Choking [None]
  - Dyspnoea [None]
  - Headache [None]
  - Swollen tongue [None]
  - Local swelling [None]
